FAERS Safety Report 12113683 (Version 2)
Quarter: 2016Q1

REPORT INFORMATION
  Report Type: Report from Study
  Country: US (occurrence: US)
  Receive Date: 20160225
  Receipt Date: 20160308
  Transmission Date: 20160526
  Serious: Yes (Other)
  Sender: FDA-Public Use
  Company Number: PHEH2013US022721

PATIENT
  Age: 35 Year
  Sex: Male
  Weight: 86.17 kg

DRUGS (5)
  1. TOBI [Suspect]
     Active Substance: TOBRAMYCIN
     Indication: PSEUDOMONAS INFECTION
  2. TOBI [Suspect]
     Active Substance: TOBRAMYCIN
     Indication: LUNG DISORDER
  3. TOBI [Suspect]
     Active Substance: TOBRAMYCIN
     Indication: BURKHOLDERIA MALLEI INFECTION
  4. TOBI [Suspect]
     Active Substance: TOBRAMYCIN
     Indication: BURKHOLDERIA PSEUDOMALLEI INFECTION
  5. TOBI [Suspect]
     Active Substance: TOBRAMYCIN
     Indication: CYSTIC FIBROSIS
     Dosage: 1 DF, BID (300 MG/5 ML)
     Route: 055
     Dates: end: 20160223

REACTIONS (4)
  - Mouth haemorrhage [Not Recovered/Not Resolved]
  - Haemoptysis [Unknown]
  - Condition aggravated [Unknown]
  - Cystic fibrosis [Unknown]

NARRATIVE: CASE EVENT DATE: 20160223
